FAERS Safety Report 18302678 (Version 1)
Quarter: 2020Q3

REPORT INFORMATION
  Report Type: Report from Study
  Country: US (occurrence: US)
  Receive Date: 20200923
  Receipt Date: 20200923
  Transmission Date: 20201104
  Serious: Yes (Other)
  Sender: FDA-Public Use
  Company Number: US-PFIZER INC-2020361549

PATIENT
  Sex: Female

DRUGS (3)
  1. SERABELISIB. [Suspect]
     Active Substance: SERABELISIB
     Indication: OVARIAN CANCER
     Dosage: 200 MG, DAYS 2?4, 9?11, 16?18, AND 23?25
  2. PACLITAXEL. [Suspect]
     Active Substance: PACLITAXEL
     Indication: OVARIAN CANCER
     Dosage: 80 MG/M2, DAYS 1, 8 AND 15
  3. SAPANISERTIB [Suspect]
     Active Substance: SAPANISERTIB
     Indication: OVARIAN CANCER
     Dosage: 4 MG, DAYS 2?4, 9?11, 16?18, AND 23?25

REACTIONS (1)
  - Renal impairment [Unknown]
